FAERS Safety Report 20993920 (Version 1)
Quarter: 2022Q2

REPORT INFORMATION
  Report Type: Spontaneous
  Country: US (occurrence: US)
  Receive Date: 20220622
  Receipt Date: 20220622
  Transmission Date: 20220721
  Serious: No
  Sender: FDA-Public Use
  Company Number: US-CTI BIOPHARMA-2022US02811

PATIENT
  Age: 64 Year
  Sex: Female

DRUGS (2)
  1. VONJO [Suspect]
     Active Substance: PACRITINIB
     Indication: Myelofibrosis
     Dosage: 200 MILLIGRAM, BID
     Route: 048
     Dates: start: 20220328, end: 20220425
  2. VONJO [Suspect]
     Active Substance: PACRITINIB
     Dosage: 100 MILLIGRAM, BID
     Route: 048
     Dates: start: 20220503

REACTIONS (5)
  - Malaise [Unknown]
  - Fluid retention [Unknown]
  - Palpitations [Unknown]
  - Pyrexia [Unknown]
  - Therapy change [Unknown]
